FAERS Safety Report 17870610 (Version 2)
Quarter: 2021Q3

REPORT INFORMATION
  Report Type: Spontaneous
  Country: US (occurrence: US)
  Receive Date: 20200608
  Receipt Date: 20210707
  Transmission Date: 20211014
  Serious: No
  Sender: FDA-Public Use
  Company Number: US-PFIZER INC-2020222417

PATIENT
  Age: 64 Year
  Sex: Female

DRUGS (2)
  1. XELJANZ XR [Suspect]
     Active Substance: TOFACITINIB CITRATE
     Indication: RHEUMATOID ARTHRITIS
     Dosage: 11 MG, DAILY
     Route: 048
     Dates: start: 2018
  2. METHOTREXATE. [Concomitant]
     Active Substance: METHOTREXATE
     Dosage: UNK

REACTIONS (2)
  - Liver function test abnormal [Unknown]
  - Drug ineffective [Unknown]
